FAERS Safety Report 13390993 (Version 1)
Quarter: 2017Q1

REPORT INFORMATION
  Report Type: Spontaneous
  Country: US (occurrence: US)
  Receive Date: 20170331
  Receipt Date: 20170331
  Transmission Date: 20170429
  Serious: No
  Sender: FDA-Public Use
  Company Number: None

PATIENT
  Age: 69 Year
  Sex: Male
  Weight: 76.2 kg

DRUGS (4)
  1. TOPAMAX [Suspect]
     Active Substance: TOPIRAMATE
     Indication: CLUSTER HEADACHE
     Dosage: QUANITY - (1) 100MG - PO BID ?(1) 50MG - PO BID?(1) 25MG - PO QD?
     Route: 048
     Dates: start: 20021005
  2. AVODART [Concomitant]
     Active Substance: DUTASTERIDE
  3. FLOMAX [Concomitant]
     Active Substance: TAMSULOSIN HYDROCHLORIDE
  4. DOXEPIN [Concomitant]
     Active Substance: DOXEPIN

REACTIONS (9)
  - Upper respiratory tract infection [None]
  - Visual impairment [None]
  - Cough [None]
  - Tremor [None]
  - Depression [None]
  - Fatigue [None]
  - Disturbance in attention [None]
  - Sleep disorder [None]
  - Muscle strain [None]

NARRATIVE: CASE EVENT DATE: 20101001
